FAERS Safety Report 12249098 (Version 1)
Quarter: 2016Q2

REPORT INFORMATION
  Report Type: Spontaneous
  Country: GB (occurrence: GB)
  Receive Date: 20160408
  Receipt Date: 20160408
  Transmission Date: 20160815
  Serious: Yes (Hospitalization, Other)
  Sender: FDA-Public Use
  Company Number: GB-TEVA-649123ISR

PATIENT
  Age: 53 Year
  Sex: Female

DRUGS (6)
  1. MYCOPHENOLATE MOFETIL. [Interacting]
     Active Substance: MYCOPHENOLATE MOFETIL
     Indication: ANTI-NEUTROPHIL CYTOPLASMIC ANTIBODY POSITIVE VASCULITIS
     Route: 065
  2. CHARCOAL ACTIVATED [Suspect]
     Active Substance: ACTIVATED CHARCOAL
     Dosage: AS NEEDED; AVERAGE OF AROUND A THIRD OF A 200-ML BOTTLE/DAY
     Route: 048
  3. CALCIUM, COLECALCIFEROL [Concomitant]
     Active Substance: CALCIUM\CHOLECALCIFEROL
     Route: 065
  4. ASPIRIN. [Concomitant]
     Active Substance: ASPIRIN
     Route: 065
  5. CYANOCOBALAMIN. [Concomitant]
     Active Substance: CYANOCOBALAMIN
     Route: 065
  6. FERROUS SULFATE. [Concomitant]
     Active Substance: FERROUS SULFATE
     Route: 065

REACTIONS (3)
  - Anti-neutrophil cytoplasmic antibody positive vasculitis [Recovered/Resolved]
  - Vasculitis [Recovered/Resolved]
  - Drug interaction [Recovered/Resolved]
